FAERS Safety Report 4552013-7 (Version None)
Quarter: 2005Q1

REPORT INFORMATION
  Report Type: 
  Country: None (occurrence: None)
  Receive Date: 20050113
  Receipt Date: 20041021
  Transmission Date: 20050727
  Serious: Yes (Life-Threatening, Hospitalization, Other)
  Sender: FDA-Public Use
  Company Number: US-MERCK-0410USA03359

PATIENT
  Age: 27 Year
  Sex: Male
  Weight: 50 kg

DRUGS (8)
  1. NOROXIN [Suspect]
     Indication: PROPHYLAXIS
     Route: 048
     Dates: start: 20040722, end: 20041017
  2. NEURONTIN [Concomitant]
     Indication: CONVULSION
     Route: 048
  3. CARBAMAZEPINE [Concomitant]
     Indication: CONVULSION
     Route: 048
  4. SINGULAIR [Suspect]
     Indication: ASTHMA
     Route: 048
  5. CLONAZEPAM [Concomitant]
     Indication: CONVULSION
     Route: 048
  6. ACCOLATE [Concomitant]
     Indication: ASTHMA
     Route: 048
     Dates: start: 20020101, end: 20041017
  7. CLARITIN [Concomitant]
     Indication: HYPERSENSITIVITY
     Route: 048
  8. RESTORIL [Concomitant]
     Indication: INSOMNIA
     Route: 048
     Dates: start: 20030101

REACTIONS (4)
  - CAPILLARY DISORDER [None]
  - PNEUMONIA [None]
  - PULMONARY ALVEOLAR HAEMORRHAGE [None]
  - TREATMENT NONCOMPLIANCE [None]
